FAERS Safety Report 6119495-0 (Version None)
Quarter: 2009Q1

REPORT INFORMATION
  Report Type: 
  Country: None (occurrence: None)
  Receive Date: 20090316
  Receipt Date: 20090306
  Transmission Date: 20090719
  Serious: Yes (Hospitalization)
  Sender: FDA-Public Use
  Company Number: A0773176A

PATIENT
  Age: 55 Year
  Sex: Male
  Weight: 96.4 kg

DRUGS (8)
  1. AVANDIA [Suspect]
     Indication: DIABETES MELLITUS
     Dosage: 8MG PER DAY
     Route: 048
     Dates: start: 20030101, end: 20060101
  2. AMARYL [Concomitant]
  3. METOPROLOL TARTRATE [Concomitant]
  4. BEXTRA [Concomitant]
  5. PAXIL [Concomitant]
  6. LOVAZA [Concomitant]
  7. LODINE [Concomitant]
  8. ULTRACET [Concomitant]

REACTIONS (2)
  - ACUTE CORONARY SYNDROME [None]
  - MYOCARDIAL INFARCTION [None]
